FAERS Safety Report 5944107-6 (Version None)
Quarter: 2008Q4

REPORT INFORMATION
  Report Type: 
  Country: None (occurrence: None)
  Receive Date: 20081106
  Receipt Date: 20081027
  Transmission Date: 20090506
  Serious: Yes (Other)
  Sender: FDA-Public Use
  Company Number: US-ABBOTT-08P-163-0483946-00

PATIENT
  Sex: Female
  Weight: 90.346 kg

DRUGS (4)
  1. HUMIRA [Suspect]
     Indication: CROHN'S DISEASE
     Route: 058
     Dates: start: 20050701, end: 20060101
  2. HUMIRA [Suspect]
     Indication: PSORIASIS
     Route: 058
     Dates: start: 20060101
  3. HUMIRA [Suspect]
     Indication: ANKYLOSING SPONDYLITIS
  4. UNKNOWN MEDICATIONS [Concomitant]
     Indication: DRUG USE FOR UNKNOWN INDICATION

REACTIONS (5)
  - ARTHRALGIA [None]
  - BREAKTHROUGH PAIN [None]
  - FALL [None]
  - KNEE ARTHROPLASTY [None]
  - MYALGIA [None]
